FAERS Safety Report 14848761 (Version 1)
Quarter: 2018Q2

REPORT INFORMATION
  Report Type: Spontaneous
  Country: PH (occurrence: PH)
  Receive Date: 20180504
  Receipt Date: 20180504
  Transmission Date: 20180711
  Serious: Yes (Death)
  Sender: FDA-Public Use
  Company Number: PH-PFIZER INC-2018179419

PATIENT
  Age: 64 Year
  Sex: Male

DRUGS (2)
  1. AMINOLEBAN EN [Suspect]
     Active Substance: UNSPECIFIED INGREDIENT
     Indication: LIVER DISORDER
     Dosage: 50 G, SINGLE
     Route: 048
     Dates: start: 20171219, end: 20171220
  2. AMLODIPINE BESILATE [Suspect]
     Active Substance: AMLODIPINE BESYLATE
     Indication: HYPERTENSION
     Dosage: UNK

REACTIONS (2)
  - Asthenia [Unknown]
  - Liver disorder [Fatal]
